FAERS Safety Report 14699382 (Version 2)
Quarter: 2020Q1

REPORT INFORMATION
  Report Type: Spontaneous
  Country: JP (occurrence: JP)
  Receive Date: 20180330
  Receipt Date: 20200204
  Transmission Date: 20200409
  Serious: Yes (Hospitalization, Other)
  Sender: FDA-Public Use
  Company Number: JP-MYLANLABS-2018M1018600

PATIENT
  Age: 31 Year
  Sex: Female

DRUGS (10)
  1. TACROLIMUS. [Suspect]
     Active Substance: TACROLIMUS
     Indication: SYSTEMIC LUPUS ERYTHEMATOSUS
  2. PREDNISOLONE. [Suspect]
     Active Substance: PREDNISOLONE
     Indication: LUPUS NEPHRITIS
     Dosage: UNK
     Route: 065
  3. METHYLPREDNISOLONE. [Suspect]
     Active Substance: METHYLPREDNISOLONE
     Indication: LUPUS NEPHRITIS
     Dosage: 3000 MG FOR 3 DAYS
     Route: 065
  4. METHYLPREDNISOLONE. [Suspect]
     Active Substance: METHYLPREDNISOLONE
     Indication: SYSTEMIC LUPUS ERYTHEMATOSUS
  5. TACROLIMUS. [Suspect]
     Active Substance: TACROLIMUS
     Indication: LUPUS NEPHRITIS
     Dosage: 3 MG, QD
     Route: 065
  6. CYCLOPHOSPHAMIDE. [Suspect]
     Active Substance: CYCLOPHOSPHAMIDE
     Indication: LUPUS NEPHRITIS
     Dosage: PULSE THERAPY
     Route: 065
  7. PREDNISOLONE. [Suspect]
     Active Substance: PREDNISOLONE
     Indication: SYSTEMIC LUPUS ERYTHEMATOSUS
  8. BETAMETHASONE. [Suspect]
     Active Substance: BETAMETHASONE
     Indication: SYSTEMIC LUPUS ERYTHEMATOSUS
     Dosage: 0.5 MG, QD
     Route: 065
  9. CYCLOPHOSPHAMIDE. [Suspect]
     Active Substance: CYCLOPHOSPHAMIDE
     Indication: SYSTEMIC LUPUS ERYTHEMATOSUS
  10. BETAMETHASONE. [Suspect]
     Active Substance: BETAMETHASONE
     Indication: LUPUS NEPHRITIS
     Dosage: 5 MG, QD (HIGH DIOSE)
     Route: 065

REACTIONS (8)
  - Altered state of consciousness [Recovered/Resolved]
  - Cytomegalovirus enteritis [Recovering/Resolving]
  - Haematochezia [Recovering/Resolving]
  - Gastric ulcer [Unknown]
  - Gastritis erosive [Unknown]
  - Disseminated intravascular coagulation [Recovered/Resolved]
  - Intestinal perforation [Recovering/Resolving]
  - Cytomegalovirus colitis [Unknown]
